FAERS Safety Report 25388534 (Version 1)
Quarter: 2025Q2

REPORT INFORMATION
  Report Type: Spontaneous
  Country: US (occurrence: US)
  Receive Date: 20250603
  Receipt Date: 20250603
  Transmission Date: 20250717
  Serious: Yes (Other)
  Sender: NOVO NORDISK
  Company Number: US-NOVOPROD-1444324

PATIENT
  Age: 71 Year
  Sex: Male

DRUGS (1)
  1. INSULIN DEGLUDEC [Suspect]
     Active Substance: INSULIN DEGLUDEC
     Indication: Diabetes mellitus
     Dosage: 14 IU, QD
     Route: 058
     Dates: start: 20250120

REACTIONS (2)
  - Cataract operation [Recovered/Resolved]
  - Cataract operation [Recovered/Resolved]

NARRATIVE: CASE EVENT DATE: 20250428
